FAERS Safety Report 7934812-4 (Version None)
Quarter: 2011Q4

REPORT INFORMATION
  Report Type: 
  Country: None (occurrence: None)
  Receive Date: 20111122
  Receipt Date: 20111110
  Transmission Date: 20120403
  Serious: Yes (Hospitalization, Other)
  Sender: FDA-Public Use
  Company Number: US-AMGEN-US375106

PATIENT
  Age: 72 Year
  Sex: Male
  Weight: 90.9 kg

DRUGS (2)
  1. CAPECITABINE [Concomitant]
     Dosage: 61050 MG, UNK
     Route: 065
     Dates: start: 20091005, end: 20091111
  2. PANITUMUMAB [Suspect]
     Indication: PANCREATIC CARCINOMA
     Dosage: 1680 MG, UNK
     Route: 065
     Dates: start: 20091005, end: 20091111

REACTIONS (9)
  - DECREASED APPETITE [None]
  - ACTIVATED PARTIAL THROMBOPLASTIN TIME SHORTENED [None]
  - DEHYDRATION [None]
  - DIARRHOEA [None]
  - BLOOD BICARBONATE DECREASED [None]
  - LYMPHOCYTE COUNT DECREASED [None]
  - PULMONARY EMBOLISM [None]
  - DYSPNOEA [None]
  - INTERNATIONAL NORMALISED RATIO INCREASED [None]
